FAERS Safety Report 6491004-6 (Version None)
Quarter: 2009Q4

REPORT INFORMATION
  Report Type: 
  Country: None (occurrence: None)
  Receive Date: 20091211
  Receipt Date: 20091206
  Transmission Date: 20100525
  Serious: Yes (Other)
  Sender: FDA-Public Use
  Company Number: BE-ROCHE-673323

PATIENT

DRUGS (2)
  1. AVASTIN [Suspect]
     Indication: ANGIOSARCOMA
     Route: 042
     Dates: end: 20091101
  2. GEMCITABINE [Concomitant]
     Indication: ANGIOSARCOMA
     Dates: start: 20090701

REACTIONS (1)
  - GENERALISED OEDEMA [None]
